FAERS Safety Report 4368072-0 (Version None)
Quarter: 2004Q2

REPORT INFORMATION
  Report Type: 
  Country: None (occurrence: None)
  Receive Date: 20040602
  Receipt Date: 20040407
  Transmission Date: 20050107
  Serious: Yes (Life-Threatening)
  Sender: FDA-Public Use
  Company Number: 200411225JP

PATIENT
  Age: 94 Year
  Sex: Male

DRUGS (6)
  1. KETEK [Suspect]
     Indication: PNEUMONIA
     Route: 048
     Dates: start: 20040312, end: 20040316
  2. SOLANTAL [Suspect]
     Indication: PYREXIA
     Route: 048
     Dates: start: 20040312, end: 20040314
  3. MEDICON [Concomitant]
     Indication: COUGH
     Route: 048
     Dates: start: 20040312, end: 20040314
  4. FOSMICIN [Concomitant]
     Indication: PNEUMONIA
     Route: 042
     Dates: start: 20040312, end: 20040312
  5. CEFMETAZON [Concomitant]
     Indication: PNEUMONIA
     Route: 042
     Dates: start: 20040313, end: 20040313
  6. VASOLAN [Concomitant]
     Indication: HYPERTENSION
     Route: 048
     Dates: start: 20040309

REACTIONS (4)
  - DEHYDRATION [None]
  - OEDEMA PERIPHERAL [None]
  - PLEURAL EFFUSION [None]
  - RENAL FAILURE ACUTE [None]
